FAERS Safety Report 9207669 (Version 3)
Quarter: 2013Q4

REPORT INFORMATION
  Report Type: Spontaneous
  Country: US (occurrence: US)
  Receive Date: 20130403
  Receipt Date: 20131203
  Transmission Date: 20140711
  Serious: Yes (Hospitalization, Other)
  Sender: FDA-Public Use
  Company Number: US-BAYER-2013-040011

PATIENT
  Age: 23 Year
  Sex: Female
  Weight: 49.89 kg

DRUGS (2)
  1. YAZ [Suspect]
     Indication: PREMENSTRUAL DYSPHORIC DISORDER
     Dosage: UNK
     Dates: start: 20060801, end: 20120224
  2. YASMIN [Suspect]
     Indication: PREMENSTRUAL DYSPHORIC DISORDER
     Dosage: UNK
     Dates: start: 20060801, end: 20120224

REACTIONS (13)
  - Cholelithiasis [None]
  - Pain in extremity [None]
  - Emotional distress [None]
  - Mood swings [None]
  - Abdominal pain upper [None]
  - Injury [None]
  - Anxiety [None]
  - Psychological trauma [None]
  - Gallbladder disorder [None]
  - Pain [None]
  - Discomfort [None]
  - Off label use [None]
  - Cholecystitis chronic [None]
